FAERS Safety Report 8345794-8 (Version None)
Quarter: 2012Q2

REPORT INFORMATION
  Report Type: 
  Country: None (occurrence: None)
  Receive Date: 20120508
  Receipt Date: 20120416
  Transmission Date: 20120825
  Serious: Yes (Death, Hospitalization)
  Sender: FDA-Public Use
  Company Number: CL-AMGEN-CHLSP2012023709

PATIENT
  Sex: Female

DRUGS (3)
  1. DAUNORUBICIN HYDROCHLORIDE [Concomitant]
     Indication: ACUTE MYELOID LEUKAEMIA
     Route: 065
  2. NEUPOGEN [Suspect]
     Indication: FEBRILE NEUTROPENIA
     Route: 065
  3. CYTARABINE [Concomitant]
     Indication: ACUTE MYELOID LEUKAEMIA
     Route: 065

REACTIONS (5)
  - CARDIOPULMONARY FAILURE [None]
  - ACUTE FEBRILE NEUTROPHILIC DERMATOSIS [None]
  - PYREXIA [None]
  - HEADACHE [None]
  - CONJUNCTIVITIS [None]
